FAERS Safety Report 5431261-8 (Version None)
Quarter: 2007Q3

REPORT INFORMATION
  Report Type: 
  Country: None (occurrence: None)
  Receive Date: 20070830
  Receipt Date: 20070820
  Transmission Date: 20080115
  Serious: Yes (Hospitalization)
  Sender: FDA-Public Use
  Company Number: US-ROCHE-512254

PATIENT
  Age: 75 Year
  Sex: Female

DRUGS (2)
  1. BONIVA [Suspect]
     Indication: DRUG USE FOR UNKNOWN INDICATION
     Route: 042
  2. UNSPECIFIED MEDICATIONS [Concomitant]
     Dosage: DRUGS REPORTED AS 'THE USUAL ONES'

REACTIONS (1)
  - COLITIS ISCHAEMIC [None]
